FAERS Safety Report 12014698 (Version 1)
Quarter: 2016Q1

REPORT INFORMATION
  Report Type: Spontaneous
  Country: FR (occurrence: FR)
  Receive Date: 20160205
  Receipt Date: 20160205
  Transmission Date: 20160526
  Serious: Yes (Congenital Anomaly)
  Sender: FDA-Public Use
  Company Number: FR-ABBVIE-16K-056-1549971-00

PATIENT

DRUGS (1)
  1. HUMIRA [Suspect]
     Active Substance: ADALIMUMAB
     Indication: PRODUCT USED FOR UNKNOWN INDICATION
     Route: 064
     Dates: start: 201306

REACTIONS (2)
  - Foetal exposure during pregnancy [Unknown]
  - Congenital diaphragmatic eventration [Not Recovered/Not Resolved]

NARRATIVE: CASE EVENT DATE: 20151217
